FAERS Safety Report 19659971 (Version 1)
Quarter: 2021Q3

REPORT INFORMATION
  Report Type: Spontaneous
  Country: US (occurrence: US)
  Receive Date: 20210802
  Receipt Date: 20210802
  Transmission Date: 20211014
  Serious: No
  Sender: FDA-Public Use
  Company Number: None

PATIENT

DRUGS (2)
  1. TRANSDERM SCOP [Suspect]
     Active Substance: SCOPOLAMINE
     Route: 061
  2. SCOPOLAMINE TRANDERMAL SYSTEM [Suspect]
     Active Substance: SCOPOLAMINE
     Dosage: ?          OTHER ROUTE:TABLE, CHEWABLE?

REACTIONS (3)
  - Product label confusion [None]
  - Drug delivery system issue [None]
  - Product dispensing error [None]
